FAERS Safety Report 5210648-2 (Version None)
Quarter: 2007Q1

REPORT INFORMATION
  Report Type: 
  Country: None (occurrence: None)
  Receive Date: 20070116
  Receipt Date: 20070116
  Transmission Date: 20070707
  Serious: Yes (Disabling)
  Sender: FDA-Public Use
  Company Number: None

PATIENT
  Sex: Male

DRUGS (1)
  1. FLEETS PHOSPHOSODA ORAL SALINE LAXATIVE [Suspect]
     Indication: COLONOSCOPY
     Dosage: UNIT  DOSE ONE DAY ORAL
     Route: 048
     Dates: start: 20060718

REACTIONS (2)
  - BLOOD CREATININE INCREASED [None]
  - BLOOD UREA INCREASED [None]
